FAERS Safety Report 20361772 (Version 4)
Quarter: 2022Q4

REPORT INFORMATION
  Report Type: Spontaneous
  Country: US (occurrence: US)
  Receive Date: 20220121
  Receipt Date: 20221006
  Transmission Date: 20230112
  Serious: No
  Sender: FDA-Public Use
  Company Number: US-PFIZER INC-2020043825

PATIENT
  Age: 63 Year

DRUGS (4)
  1. PRISTIQ EXTENDED-RELEASE [Suspect]
     Active Substance: DESVENLAFAXINE SUCCINATE
     Indication: Generalised anxiety disorder
     Dosage: 100 MG, 1X/DAY (TAKE ONE TABLET EVERY MORNING)
     Dates: start: 20200106
  2. PRISTIQ EXTENDED-RELEASE [Suspect]
     Active Substance: DESVENLAFAXINE SUCCINATE
     Indication: Major depression
     Dosage: 100 MG, 1X/DAY (TAKE ONE TABLET EVERY MORNING)
     Dates: start: 20200924
  3. PRISTIQ EXTENDED-RELEASE [Suspect]
     Active Substance: DESVENLAFAXINE SUCCINATE
     Dosage: 100 MG, 1X/DAY (TAK E ONE TABLET EVERY MORNING)
     Dates: start: 20220616
  4. PRISTIQ EXTENDED-RELEASE [Suspect]
     Active Substance: DESVENLAFAXINE SUCCINATE
     Dosage: 100 MG(TAKE ONE TABLET EVERY MORNING)
     Dates: start: 20221004

REACTIONS (2)
  - Off label use [Unknown]
  - Reading disorder [Unknown]
